FAERS Safety Report 25113835 (Version 1)
Quarter: 2025Q1

REPORT INFORMATION
  Report Type: Spontaneous
  Country: FR (occurrence: FR)
  Receive Date: 20250324
  Receipt Date: 20250324
  Transmission Date: 20250408
  Serious: Yes (Other)
  Sender: CHEPLAPHARM
  Company Number: None

PATIENT
  Age: 76 Year
  Sex: Female

DRUGS (7)
  1. CAPECITABINE [Suspect]
     Active Substance: CAPECITABINE
     Indication: Breast cancer
     Dosage: 2 G/D?DAILY DOSE: 2 GRAM
     Route: 048
     Dates: start: 20241206, end: 20241219
  2. CAPECITABINE [Suspect]
     Active Substance: CAPECITABINE
     Indication: Breast cancer
     Dosage: 2 G/D?DAILY DOSE: 2 GRAM
     Route: 048
     Dates: start: 20241227, end: 20250110
  3. CAPECITABINE [Suspect]
     Active Substance: CAPECITABINE
     Indication: Breast cancer
     Dosage: 2 G/D?DAILY DOSE: 2 GRAM
     Route: 048
     Dates: start: 20250118, end: 20250202
  4. CAPECITABINE [Suspect]
     Active Substance: CAPECITABINE
     Indication: Breast cancer
     Dosage: 2 G/D?DAILY DOSE: 2 GRAM
     Route: 048
     Dates: start: 20250210
  5. LAPATINIB [Suspect]
     Active Substance: LAPATINIB
     Indication: Breast cancer
     Dosage: 250 MG/D?DAILY DOSE: 250 MILLIGRAM
     Route: 048
     Dates: start: 20241206, end: 20241216
  6. LAPATINIB [Suspect]
     Active Substance: LAPATINIB
     Indication: Breast cancer
     Dosage: 750 MG/D?DAILY DOSE: 750 MILLIGRAM
     Route: 048
     Dates: start: 20241217, end: 20250202
  7. LAPATINIB [Suspect]
     Active Substance: LAPATINIB
     Indication: Breast cancer
     Dosage: 750 MG/D?DAILY DOSE: 750 MILLIGRAM
     Route: 048
     Dates: start: 20250210

REACTIONS (2)
  - Oesophageal pain [Not Recovered/Not Resolved]
  - Gastrooesophageal reflux disease [Not Recovered/Not Resolved]

NARRATIVE: CASE EVENT DATE: 20241217
